FAERS Safety Report 8338650-2 (Version None)
Quarter: 2012Q2

REPORT INFORMATION
  Report Type: 
  Country: None (occurrence: None)
  Receive Date: 20120504
  Receipt Date: 20120427
  Transmission Date: 20120825
  Serious: No
  Sender: FDA-Public Use
  Company Number: US-PFIZER INC-2012054168

PATIENT
  Sex: Female
  Weight: 61 kg

DRUGS (5)
  1. PREMARIN [Suspect]
     Indication: HORMONE LEVEL ABNORMAL
     Dosage: 0.625 MG, 1X/DAY
  2. ACCUPRIL [Suspect]
     Indication: CEREBROVASCULAR ACCIDENT
     Dosage: 40 MG, DAILY
     Dates: start: 20000101
  3. LEVOTHYROXINE SODIUM [Suspect]
     Indication: THYROID DISORDER
     Dosage: 100 UG, 4X/WEEK
     Dates: start: 20070101
  4. NORVASC [Suspect]
     Indication: CEREBROVASCULAR ACCIDENT
     Dosage: 10 MG, 1X/DAY
     Dates: start: 20000101
  5. LIPITOR [Suspect]
     Indication: BLOOD CHOLESTEROL ABNORMAL
     Dosage: 40 MG, DAILY
     Dates: start: 20040101

REACTIONS (3)
  - EMOTIONAL DISORDER [None]
  - HYPERHIDROSIS [None]
  - HOT FLUSH [None]
